FAERS Safety Report 12983180 (Version 1)
Quarter: 2016Q4

REPORT INFORMATION
  Report Type: Spontaneous
  Country: US (occurrence: US)
  Receive Date: 20161129
  Receipt Date: 20161129
  Transmission Date: 20170207
  Serious: No
  Sender: FDA-Public Use
  Company Number: US-MALLINCKRODT-T201605428

PATIENT
  Age: 57 Year
  Sex: Male
  Weight: 109 kg

DRUGS (6)
  1. NITROGLYCERIN. [Concomitant]
     Active Substance: NITROGLYCERIN
  2. HUMULIN R [Concomitant]
     Active Substance: INSULIN HUMAN
  3. IMDUR [Concomitant]
     Active Substance: ISOSORBIDE MONONITRATE
  4. FENTANYL TRANSDERMAL SYSTEM [Suspect]
     Active Substance: FENTANYL
     Indication: PAIN
     Dosage: 12 MCG/HR, Q72H
     Route: 062
     Dates: start: 20161019
  5. LOPID [Concomitant]
     Active Substance: GEMFIBROZIL
     Indication: BLOOD CHOLESTEROL INCREASED
  6. HUMULIN N [Concomitant]
     Active Substance: INSULIN HUMAN

REACTIONS (3)
  - Drug ineffective [Not Recovered/Not Resolved]
  - Chest discomfort [Not Recovered/Not Resolved]
  - Dyspnoea [Not Recovered/Not Resolved]

NARRATIVE: CASE EVENT DATE: 20161019
